FAERS Safety Report 11673082 (Version 3)
Quarter: 2015Q4

REPORT INFORMATION
  Report Type: Spontaneous
  Country: US (occurrence: US)
  Receive Date: 20151028
  Receipt Date: 20151126
  Transmission Date: 20160304
  Serious: Yes (Hospitalization)
  Sender: FDA-Public Use
  Company Number: US-009507513-1510USA011181

PATIENT
  Age: 65 Year
  Sex: Male

DRUGS (1)
  1. KEYTRUDA [Suspect]
     Active Substance: PEMBROLIZUMAB
     Indication: MESOTHELIOMA MALIGNANT
     Dosage: UNK, CYCLICAL
     Route: 041
     Dates: start: 20150715

REACTIONS (6)
  - Malignant pleural effusion [Recovering/Resolving]
  - Fatigue [Unknown]
  - Acne [Unknown]
  - Product use issue [Unknown]
  - Ageusia [Unknown]
  - Abdominal discomfort [Unknown]

NARRATIVE: CASE EVENT DATE: 2015
